FAERS Safety Report 21406792 (Version 1)
Quarter: 2022Q4

REPORT INFORMATION
  Report Type: Spontaneous
  Country: US (occurrence: None)
  Receive Date: 20221003
  Receipt Date: 20221003
  Transmission Date: 20230113
  Serious: Yes (Hospitalization)
  Sender: FDA-Public Use
  Company Number: None

PATIENT
  Age: 61 Year
  Sex: Female
  Weight: 65.9 kg

DRUGS (15)
  1. YESCARTA [Suspect]
     Active Substance: AXICABTAGENE CILOLEUCEL
     Indication: Diffuse large B-cell lymphoma
     Dosage: FREQUENCY : ONCE;?
     Route: 041
     Dates: start: 20220921, end: 20220921
  2. ACTEMRA [Concomitant]
     Active Substance: TOCILIZUMAB
     Dates: end: 20220926
  3. anakinra (Kineret) [Concomitant]
     Dates: end: 20220928
  4. DECADRON [Concomitant]
     Active Substance: DEXAMETHASONE
  5. methylPREDNISolone (SOLU-Medrol) [Concomitant]
     Dates: end: 20220930
  6. NOREPINEPHRINE [Concomitant]
     Active Substance: NOREPINEPHRINE
     Dates: end: 20220927
  7. KEPPRA [Concomitant]
     Active Substance: LEVETIRACETAM
     Dates: start: 20220920
  8. posaconazole (Noxafil) [Concomitant]
  9. LEVAQUIN [Concomitant]
     Active Substance: LEVOFLOXACIN
  10. acyclovir (Zovirax) [Concomitant]
  11. cefepime (Maxipime) [Concomitant]
     Dates: end: 20220925
  12. MEROPENEM [Concomitant]
     Active Substance: MEROPENEM
     Dates: end: 20220926
  13. trimethoprim-sulfamethoxazole (Bactrim) [Concomitant]
  14. VANCOMYCIN [Concomitant]
     Active Substance: VANCOMYCIN
     Dates: end: 20220925
  15. caspofungin (Cancidas) [Concomitant]
     Dates: end: 20220926

REACTIONS (3)
  - Lymphocyte adoptive therapy [None]
  - Cytokine release syndrome [None]
  - Atelectasis [None]

NARRATIVE: CASE EVENT DATE: 20220921
